FAERS Safety Report 5752344-9 (Version None)
Quarter: 2008Q2

REPORT INFORMATION
  Report Type: 
  Country: None (occurrence: None)
  Receive Date: 20080529
  Receipt Date: 20080522
  Transmission Date: 20081010
  Serious: Yes (Hospitalization)
  Sender: FDA-Public Use
  Company Number: IT-TEVA-171944ISR

PATIENT
  Sex: Male

DRUGS (4)
  1. FLUOROURACIL [Suspect]
     Indication: COLON CANCER STAGE III
     Route: 042
     Dates: start: 20080226, end: 20080429
  2. FLUOROURACIL [Suspect]
     Route: 042
     Dates: start: 20080226, end: 20080429
  3. OXALIPLATIN [Suspect]
     Indication: COLON CANCER STAGE III
     Route: 042
     Dates: start: 20080226, end: 20080429
  4. CALCIUM FOLINATE [Concomitant]
     Indication: COLON CANCER STAGE III
     Route: 042
     Dates: start: 20080226, end: 20080429

REACTIONS (2)
  - ATRIAL FIBRILLATION [None]
  - PULMONARY EMBOLISM [None]
